FAERS Safety Report 21106662 (Version 1)
Quarter: 2022Q3

REPORT INFORMATION
  Report Type: Spontaneous
  Country: US (occurrence: US)
  Receive Date: 20220720
  Receipt Date: 20220720
  Transmission Date: 20221026
  Serious: Yes (Hospitalization, Other)
  Sender: FDA-Public Use
  Company Number: US-TEVA-2022-US-2055156

PATIENT
  Age: 51 Year
  Sex: Male

DRUGS (2)
  1. COPAXONE [Suspect]
     Active Substance: GLATIRAMER ACETATE
     Indication: Product used for unknown indication
     Dosage: FORM STRENGTH: UNKNOWN
     Route: 065
  2. GLATIRAMER ACETATE [Suspect]
     Active Substance: GLATIRAMER ACETATE
     Indication: Product used for unknown indication
     Route: 065

REACTIONS (7)
  - Urinary tract infection [Unknown]
  - Sepsis [Unknown]
  - Injection site reaction [Unknown]
  - Memory impairment [Unknown]
  - Insurance issue [Unknown]
  - Wound [Recovering/Resolving]
  - Drug ineffective [Unknown]
